FAERS Safety Report 6720308-4 (Version None)
Quarter: 2010Q2

REPORT INFORMATION
  Report Type: 
  Country: None (occurrence: None)
  Receive Date: 20100511
  Receipt Date: 20100504
  Transmission Date: 20101027
  Serious: Yes (Life-Threatening)
  Sender: FDA-Public Use
  Company Number: PHHY2010MX28750

PATIENT
  Age: 69 Year
  Sex: Female

DRUGS (3)
  1. FEMARA [Suspect]
     Indication: NEOPLASM MALIGNANT
     Dosage: 1 TABLET (2.5) DAILY; UNK
     Route: 048
     Dates: end: 20100301
  2. ERANZ [Concomitant]
     Indication: DEMENTIA ALZHEIMER'S TYPE
     Dosage: 1 TABLET DAILY; UNK
  3. RISPERDAL [Concomitant]
     Indication: NERVOUSNESS
     Dosage: 1 TABLET; UNK

REACTIONS (1)
  - DEMENTIA ALZHEIMER'S TYPE [None]
